FAERS Safety Report 5331121-7 (Version None)
Quarter: 2007Q2

REPORT INFORMATION
  Report Type: 
  Country: None (occurrence: None)
  Receive Date: 20070518
  Receipt Date: 20070518
  Transmission Date: 20071010
  Serious: Yes (Hospitalization)
  Sender: FDA-Public Use
  Company Number: None

PATIENT
  Age: 53 Year
  Sex: Female
  Weight: 114 kg

DRUGS (2)
  1. INVANZ [Suspect]
     Indication: CELLULITIS
     Dosage: 500 MG 24 HOURS IV
     Route: 042
     Dates: start: 20070313, end: 20070409
  2. VANCOMYCIN [Suspect]
     Indication: CELLULITIS
     Dosage: 1250 MG 24 HOURS IV
     Route: 042
     Dates: start: 20070313, end: 20070409

REACTIONS (3)
  - DYSPNOEA [None]
  - STEVENS-JOHNSON SYNDROME [None]
  - WHITE BLOOD CELL COUNT INCREASED [None]
